FAERS Safety Report 6297678-7 (Version None)
Quarter: 2009Q3

REPORT INFORMATION
  Report Type: 
  Country: None (occurrence: None)
  Receive Date: 20090805
  Receipt Date: 20090728
  Transmission Date: 20100115
  Serious: Yes (Hospitalization)
  Sender: FDA-Public Use
  Company Number: US-PFIZER INC-2008152122

PATIENT
  Sex: Male
  Weight: 93 kg

DRUGS (2)
  1. SUTENT [Suspect]
     Indication: RENAL CELL CARCINOMA
     Dosage: 37.5 MG, 1X/DAY
     Route: 048
     Dates: start: 20080624, end: 20081210
  2. GEMCITABINE [Suspect]
     Indication: RENAL CELL CARCINOMA
     Dosage: 1000 MG/M2, UNK
     Dates: start: 20080624, end: 20081209

REACTIONS (5)
  - HAEMOGLOBIN DECREASED [None]
  - INFECTION [None]
  - LEFT VENTRICULAR DYSFUNCTION [None]
  - PYREXIA [None]
  - TROPONIN INCREASED [None]
